FAERS Safety Report 6013987-0 (Version None)
Quarter: 2008Q4

REPORT INFORMATION
  Report Type: 
  Country: None (occurrence: None)
  Receive Date: 20081216
  Receipt Date: 20080603
  Transmission Date: 20090506
  Serious: Yes (Hospitalization)
  Sender: FDA-Public Use
  Company Number: US-WYE-H04358908

PATIENT
  Age: 67 Year
  Sex: Female

DRUGS (4)
  1. EFFEXOR XR [Suspect]
     Indication: DEPRESSION
     Dosage: 37.5 MG 2X PER 1 DAY, ORAL
     Route: 048
     Dates: start: 20080101
  2. SYNTHROID [Concomitant]
  3. GLUCOTROL [Concomitant]
  4. GLUCOPHAGE [Concomitant]

REACTIONS (5)
  - GENITAL HAEMORRHAGE [None]
  - HEADACHE [None]
  - NIGHTMARE [None]
  - RECTAL HAEMORRHAGE [None]
  - TACHYPHRENIA [None]
